FAERS Safety Report 6440652-8 (Version None)
Quarter: 2009Q4

REPORT INFORMATION
  Report Type: 
  Country: None (occurrence: None)
  Receive Date: 20091116
  Receipt Date: 20091109
  Transmission Date: 20100525
  Serious: Yes (Life-Threatening, Hospitalization, Other)
  Sender: FDA-Public Use
  Company Number: PHHO2009IT13750

PATIENT
  Sex: Female
  Weight: 65 kg

DRUGS (3)
  1. RAD 666 RAD+TAB+CMAS [Suspect]
     Indication: OVARIAN CANCER
     Dosage: 7.5MG
     Dates: start: 20090331, end: 20090922
  2. RAD 666 RAD+TAB+CMAS [Suspect]
     Dosage: 5.0MG
  3. CAELYX [Concomitant]
     Indication: OVARIAN CANCER
     Dosage: 40 MG/M2
     Dates: start: 20090331, end: 20090902

REACTIONS (5)
  - ACUTE LEUKAEMIA [None]
  - MALIGNANT NEOPLASM PROGRESSION [None]
  - NEUTROPENIA [None]
  - RASH [None]
  - THROMBOCYTOPENIA [None]
